FAERS Safety Report 6438233-5 (Version None)
Quarter: 2009Q4

REPORT INFORMATION
  Report Type: 
  Country: None (occurrence: None)
  Receive Date: 20091109
  Receipt Date: 20091023
  Transmission Date: 20100525
  Serious: Yes (Life-Threatening, Hospitalization, Other)
  Sender: FDA-Public Use
  Company Number: 2009AL001374

PATIENT
  Age: 39 Year
  Sex: Male

DRUGS (10)
  1. METFORMIN HYDROCHLORIDE EXTENDED-RELEASE TABLETS, 750 MG (PUREPAC) (ME [Suspect]
     Indication: TYPE 2 DIABETES MELLITUS
     Dosage: 500 MG; TID; PO
     Route: 048
     Dates: start: 20090217
  2. SIMVASTATIN [Concomitant]
  3. CLOZARIL [Concomitant]
  4. HYOSCINE HYDROBPOMIDE [Concomitant]
  5. CLOMIPRAMINE [Concomitant]
  6. LISINOPRIL [Concomitant]
  7. OMEPRAZOLE [Concomitant]
  8. ALCOHOL [Concomitant]
  9. SENNA [Concomitant]
  10. THIAMIDE [Concomitant]

REACTIONS (6)
  - AGITATION [None]
  - ALCOHOL USE [None]
  - COMA SCALE ABNORMAL [None]
  - MULTIPLE DRUG OVERDOSE [None]
  - NEUTROPHIL COUNT INCREASED [None]
  - WHITE BLOOD CELL COUNT INCREASED [None]
